FAERS Safety Report 11445800 (Version 1)
Quarter: 2015Q3

REPORT INFORMATION
  Report Type: Spontaneous
  Country: US (occurrence: US)
  Receive Date: 20150902
  Receipt Date: 20150902
  Transmission Date: 20151125
  Serious: Yes (Other)
  Sender: FDA-Public Use
  Company Number: US-SHIRE-US201510713

PATIENT
  Age: 29 Year
  Sex: Male
  Weight: 72.56 kg

DRUGS (1)
  1. ADDERALL XR [Suspect]
     Active Substance: AMPHETAMINE ASPARTATE\AMPHETAMINE SULFATE\DEXTROAMPHETAMINE SACCHARATE\DEXTROAMPHETAMINE SULFATE
     Indication: ATTENTION DEFICIT/HYPERACTIVITY DISORDER
     Dosage: 20 MG, 1X/DAY:QD (AS NEEDED, GENERALLY 3 TIMES WEEKLY)
     Route: 048

REACTIONS (11)
  - Urine abnormality [Not Recovered/Not Resolved]
  - Dry mouth [Unknown]
  - Inappropriate schedule of drug administration [Not Recovered/Not Resolved]
  - Protein urine present [Not Recovered/Not Resolved]
  - Pollakiuria [Not Recovered/Not Resolved]
  - Feeling abnormal [Not Recovered/Not Resolved]
  - Flank pain [Not Recovered/Not Resolved]
  - Renal pain [Not Recovered/Not Resolved]
  - Personality change [Not Recovered/Not Resolved]
  - Blood urine present [Not Recovered/Not Resolved]
  - Renal failure [Unknown]

NARRATIVE: CASE EVENT DATE: 201506
